FAERS Safety Report 21215664 (Version 1)
Quarter: 2022Q3

REPORT INFORMATION
  Report Type: Spontaneous
  Country: US (occurrence: None)
  Receive Date: 20220816
  Receipt Date: 20220816
  Transmission Date: 20221027
  Serious: No
  Sender: FDA-Public Use
  Company Number: 2022A281478

PATIENT
  Age: 60 Year
  Sex: Male
  Weight: 77.1 kg

DRUGS (2)
  1. BUDESONIDE\FORMOTEROL\GLYCOPYRRONIUM [Suspect]
     Active Substance: BUDESONIDE\FORMOTEROL\GLYCOPYRRONIUM
     Indication: Chronic obstructive pulmonary disease
     Dosage: 160 MCG / 9 MCG / 4.8 MCG, 2 INHALATIONS, 2 TIMES A DAY
     Route: 055
     Dates: start: 2020
  2. SYMBICORT [Concomitant]
     Active Substance: BUDESONIDE\FORMOTEROL FUMARATE DIHYDRATE
     Route: 065

REACTIONS (4)
  - Dyspnoea [Unknown]
  - Incorrect dose administered by device [Unknown]
  - Intentional device use issue [Unknown]
  - Device malfunction [Unknown]

NARRATIVE: CASE EVENT DATE: 20220701
